FAERS Safety Report 22209452 (Version 1)
Quarter: 2023Q2

REPORT INFORMATION
  Report Type: Report from Study
  Country: CO (occurrence: CO)
  Receive Date: 20230414
  Receipt Date: 20230414
  Transmission Date: 20230722
  Serious: Yes (Hospitalization, Other)
  Sender: FDA-Public Use
  Company Number: CO-ABBVIE-4726258

PATIENT
  Sex: Male

DRUGS (1)
  1. SKYRIZI [Suspect]
     Active Substance: RISANKIZUMAB-RZAA
     Indication: Psoriasis
     Route: 058
     Dates: start: 20211029

REACTIONS (15)
  - Road traffic accident [Recovering/Resolving]
  - Psoriasis [Not Recovered/Not Resolved]
  - Haemorrhage [Recovering/Resolving]
  - Walking disability [Recovering/Resolving]
  - Immune system disorder [Recovering/Resolving]
  - Lung disorder [Recovering/Resolving]
  - Dysstasia [Recovering/Resolving]
  - Head injury [Recovering/Resolving]
  - Memory impairment [Not Recovered/Not Resolved]
  - Anxiety [Not Recovered/Not Resolved]
  - Joint injury [Recovered/Resolved]
  - Ligament sprain [Recovered/Resolved]
  - Bone disorder [Recovering/Resolving]
  - Bedridden [Recovering/Resolving]
  - Rash [Not Recovered/Not Resolved]

NARRATIVE: CASE EVENT DATE: 20230101
